FAERS Safety Report 4376922-7 (Version None)
Quarter: 2004Q2

REPORT INFORMATION
  Report Type: 
  Country: None (occurrence: None)
  Receive Date: 20040608
  Receipt Date: 20040524
  Transmission Date: 20050107
  Serious: Yes (Other)
  Sender: FDA-Public Use
  Company Number: DE-JNJFOC-20040502855

PATIENT
  Sex: Male

DRUGS (4)
  1. HALDOL [Suspect]
     Indication: MAJOR DEPRESSION
     Dosage: 5 MG, IN 1 DAY,
     Dates: start: 20040203
  2. CLOMIPRAMIN (CLOMIPRAMINE) [Suspect]
  3. MAPROTILIN (MAPROTILINE) [Suspect]
  4. LITHIUM (LITHIUM) [Suspect]
     Dates: start: 20040213

REACTIONS (3)
  - ATAXIA [None]
  - DRUG INTERACTION [None]
  - DYSARTHRIA [None]
